FAERS Safety Report 18475073 (Version 1)
Quarter: 2020Q4

REPORT INFORMATION
  Report Type: Spontaneous
  Country: CR (occurrence: CR)
  Receive Date: 20201106
  Receipt Date: 20201106
  Transmission Date: 20210114
  Serious: Yes (Other)
  Sender: FDA-Public Use
  Company Number: CR-BAYER-2020-212029

PATIENT
  Age: 35 Year
  Sex: Female

DRUGS (2)
  1. MIRENA [Suspect]
     Active Substance: LEVONORGESTREL
     Indication: GENITAL HAEMORRHAGE
     Dosage: 20 ?G PER DAY, CONTINUOUSLY
     Route: 015
     Dates: start: 20190424, end: 20200702
  2. MIRENA [Suspect]
     Active Substance: LEVONORGESTREL
     Indication: GENITAL HAEMORRHAGE
     Dosage: 20 ?G PER DAY, CONTINUOUSLY
     Route: 015
     Dates: start: 20200807

REACTIONS (10)
  - Kidney infection [None]
  - Device expulsion [Recovered/Resolved]
  - Genital haemorrhage [None]
  - Off label use [None]
  - Pain [None]
  - Gait disturbance [None]
  - Genital haemorrhage [None]
  - Menorrhagia [None]
  - Urinary tract infection [None]
  - Abdominal pain [None]

NARRATIVE: CASE EVENT DATE: 201904
